FAERS Safety Report 7093516-3 (Version None)
Quarter: 2010Q4

REPORT INFORMATION
  Report Type: 
  Country: None (occurrence: None)
  Receive Date: 20101110
  Receipt Date: 20101001
  Transmission Date: 20110411
  Serious: Yes (Other)
  Sender: FDA-Public Use
  Company Number: GB-SOLVAY-00210006657

PATIENT
  Age: 60 Year
  Sex: Female
  Weight: 82 kg

DRUGS (3)
  1. FELODIPINE [Concomitant]
     Indication: HYPERTENSION
     Dosage: DAILY DOSE: 2.5 MILLIGRAM(S)
     Route: 065
  2. ALFACALCIDOL [Concomitant]
     Indication: BONE DISORDER
     Dosage: DAILY DOSE: 2.5 NANOGRAM(S)
     Route: 065
  3. PERINDOPRIL ERBUMINE [Suspect]
     Indication: HYPERTENSION
     Dosage: DAILY DOSE:  UNKNOWN, 4 MG UNPRECISED DAILY DOSE
     Route: 048

REACTIONS (2)
  - ANOSMIA [None]
  - EYE PAIN [None]
